FAERS Safety Report 23647290 (Version 4)
Quarter: 2024Q2

REPORT INFORMATION
  Report Type: Spontaneous
  Country: US (occurrence: US)
  Receive Date: 20240319
  Receipt Date: 20240422
  Transmission Date: 20240716
  Serious: No
  Sender: FDA-Public Use
  Company Number: US-GLAXOSMITHKLINE-US2024AMR033938

PATIENT
  Age: 67 Year
  Sex: Female

DRUGS (2)
  1. ZEJULA [Suspect]
     Active Substance: NIRAPARIB
     Indication: Ovarian cancer
     Dosage: 200 MG, QD
  2. AVASTIN [Suspect]
     Active Substance: BEVACIZUMAB
     Indication: Product used for unknown indication
     Dosage: UNK

REACTIONS (16)
  - Hypertension [Unknown]
  - Dizziness [Unknown]
  - Blood magnesium decreased [Unknown]
  - Asthenia [Unknown]
  - Dehydration [Unknown]
  - Dyspnoea [Unknown]
  - Pleural effusion [Unknown]
  - Rash papular [Unknown]
  - Taste disorder [Unknown]
  - Blood pressure increased [Unknown]
  - White blood cell count decreased [Recovered/Resolved]
  - Anaemia [Unknown]
  - Constipation [Recovering/Resolving]
  - Haematocrit decreased [Unknown]
  - Haemoglobin decreased [Unknown]
  - Fatigue [Unknown]

NARRATIVE: CASE EVENT DATE: 20240312
